FAERS Safety Report 21852510 (Version 1)
Quarter: 2023Q1

REPORT INFORMATION
  Report Type: Spontaneous
  Country: CA (occurrence: CA)
  Receive Date: 20230112
  Receipt Date: 20230112
  Transmission Date: 20230418
  Serious: Yes (Hospitalization)
  Sender: FDA-Public Use
  Company Number: CA-BAXTER-2023BAX010004

PATIENT
  Age: 5 Month
  Sex: Female
  Weight: 5 kg

DRUGS (3)
  1. DEXTROSE\SODIUM CHLORIDE [Suspect]
     Active Substance: DEXTROSE\SODIUM CHLORIDE
     Indication: Dehydration
     Dosage: 40 ML, ONCE (DOSAGE FORM: SOLUTION INTRAVENOUS, DEXTROSE 5 PERCENT IN 0.9 PERCENT SODIUM CHLORIDE)
     Route: 042
  2. SODIUM CHLORIDE [Suspect]
     Active Substance: SODIUM CHLORIDE
     Indication: Dehydration
     Dosage: 120 ML, ONCE
     Route: 040
  3. POTASSIUM CHLORIDE [Concomitant]
     Active Substance: POTASSIUM CHLORIDE
     Dosage: DOSAGE FORM: NOT SPECIFIED
     Route: 065

REACTIONS (4)
  - Diarrhoea [Recovered/Resolved]
  - Vomiting [Recovered/Resolved]
  - Hypernatraemia [Recovered/Resolved]
  - Pyrexia [Recovered/Resolved]
